FAERS Safety Report 5812547-1 (Version None)
Quarter: 2008Q3

REPORT INFORMATION
  Report Type: 
  Country: None (occurrence: None)
  Receive Date: 20080714
  Receipt Date: 20080714
  Transmission Date: 20090109
  Serious: No
  Sender: FDA-Public Use
  Company Number: None

PATIENT
  Age: 62 Year
  Sex: Male
  Weight: 84.8226 kg

DRUGS (3)
  1. CIPRO [Suspect]
     Indication: DRUG INEFFECTIVE
     Dosage: 1 PILL PER DAY PO, 3 WEEKS PRIOR TO DRUG #2
     Route: 048
  2. CIPRO [Suspect]
     Indication: EAR INFECTION
     Dosage: 1 PILL PER DAY PO, 3 WEEKS PRIOR TO DRUG #2
     Route: 048
  3. LEVAQUIN [Suspect]
     Indication: EAR INFECTION
     Dosage: 1 PILL PER DAY PO
     Route: 048

REACTIONS (1)
  - TENDON RUPTURE [None]
